FAERS Safety Report 25821902 (Version 1)
Quarter: 2025Q3

REPORT INFORMATION
  Report Type: Spontaneous
  Country: US (occurrence: US)
  Receive Date: 20250919
  Receipt Date: 20250919
  Transmission Date: 20251021
  Serious: No
  Sender: ALEXION PHARMACEUTICALS
  Company Number: US-AstraZeneca-CH-00951751AP

PATIENT

DRUGS (1)
  1. BUDESONIDE\FORMOTEROL [Suspect]
     Active Substance: BUDESONIDE\FORMOTEROL
     Route: 065

REACTIONS (7)
  - Product use issue [Unknown]
  - Chest discomfort [Unknown]
  - Asthma [Unknown]
  - Chronic obstructive pulmonary disease [Unknown]
  - Sarcoidosis [Unknown]
  - Secretion discharge [Unknown]
  - Product dose omission issue [Unknown]
